FAERS Safety Report 4798924-9 (Version None)
Quarter: 2005Q4

REPORT INFORMATION
  Report Type: 
  Country: None (occurrence: None)
  Receive Date: 20051014
  Receipt Date: 20051005
  Transmission Date: 20060501
  Serious: Yes (Other)
  Sender: FDA-Public Use
  Company Number: FR-BRISTOL-MYERS SQUIBB COMPANY-13139894

PATIENT
  Age: 53 Year
  Sex: Male

DRUGS (3)
  1. CETUXIMAB [Suspect]
     Indication: SQUAMOUS CELL CARCINOMA
     Dosage: MOST RECENT INFUSION 04-OCT-05 (13TH INFUSION)
     Route: 041
     Dates: start: 20050704
  2. CISPLATIN [Suspect]
     Indication: SQUAMOUS CELL CARCINOMA
     Dosage: MOST RECENT INFUSION 04-OCT-05 (4TH INFUSION).
     Route: 042
     Dates: start: 20050704
  3. FLUOROPLEX [Suspect]
     Indication: SQUAMOUS CELL CARCINOMA
     Dosage: RECEIVED 4 INFUSIONS TOTAL.
     Route: 042
     Dates: start: 20050704, end: 20051004

REACTIONS (2)
  - ALANINE AMINOTRANSFERASE INCREASED [None]
  - ASPARTATE AMINOTRANSFERASE INCREASED [None]
